FAERS Safety Report 24608126 (Version 1)
Quarter: 2024Q4

REPORT INFORMATION
  Report Type: Spontaneous
  Country: US (occurrence: US)
  Receive Date: 20241112
  Receipt Date: 20241112
  Transmission Date: 20250114
  Serious: Yes (Other)
  Sender: AUROBINDO
  Company Number: US-AUROBINDO-AUR-APL-2024-054519

PATIENT
  Age: 4 Year
  Sex: Female

DRUGS (2)
  1. MILRINONE LACTATE [Suspect]
     Active Substance: MILRINONE LACTATE
     Indication: Right ventricular failure
     Dosage: UNK
     Route: 065
  2. NITRIC OXIDE [Suspect]
     Active Substance: NITRIC OXIDE
     Indication: Right ventricular failure
     Dosage: 40 PPM
     Route: 065

REACTIONS (1)
  - Drug ineffective [Unknown]
